FAERS Safety Report 7428572-3 (Version None)
Quarter: 2011Q2

REPORT INFORMATION
  Report Type: 
  Country: None (occurrence: None)
  Receive Date: 20110421
  Receipt Date: 20090219
  Transmission Date: 20111010
  Serious: Yes (Other)
  Sender: FDA-Public Use
  Company Number: US-BAYER-200914103NA

PATIENT
  Age: 72 Year
  Sex: Male
  Weight: 84.807 kg

DRUGS (18)
  1. FENTANYL [Concomitant]
     Dosage: 50
  2. ACETYLSALICYLIC ACID SRT [Concomitant]
     Dosage: 81 MG, QD
     Route: 048
  3. TOPROL-XL [Concomitant]
     Dosage: 50 MG, QD
     Route: 048
  4. TRASYLOL [Suspect]
     Indication: CORONARY ARTERY BYPASS
     Dosage: 10 GR X 3
     Route: 042
     Dates: start: 20060807, end: 20060807
  5. PROTAMINE SULFATE [Concomitant]
  6. NITROGLYCERIN [Concomitant]
     Dosage: 0.4 MG, UNK
     Route: 060
  7. PROTONIX [Concomitant]
     Dosage: 40 MG, UNK
     Route: 048
  8. ALPRAZOLAM [Concomitant]
     Dosage: 0.25 MG, PRN
     Route: 048
  9. ANCEF [Concomitant]
     Dosage: DURING SURGERY
  10. NEXIUM [Concomitant]
     Dosage: 40 MG, UNK
     Route: 048
  11. ZEMURON [Concomitant]
     Dosage: 50 MG, UNK
  12. DIOVAN HCT [Concomitant]
     Dosage: 80 MG, QD
     Route: 048
  13. HEPARIN [Concomitant]
     Dosage: DURING SURGERY
  14. VERSED [Concomitant]
     Dosage: 2.5
  15. GLUCOSE [Concomitant]
  16. ETOMIDATE [Concomitant]
     Dosage: 16 MG, UNK
  17. PAVULON [Concomitant]
     Dosage: 10 MG, UNK
  18. PROSCAR [Concomitant]
     Dosage: 5 MG, UNK
     Route: 048

REACTIONS (2)
  - INJURY [None]
  - RENAL FAILURE [None]
